FAERS Safety Report 23354450 (Version 3)
Quarter: 2024Q1

REPORT INFORMATION
  Report Type: Spontaneous
  Country: US (occurrence: US)
  Receive Date: 20240101
  Receipt Date: 20240125
  Transmission Date: 20240410
  Serious: No
  Sender: FDA-Public Use
  Company Number: US-ViiV Healthcare Limited-105160

PATIENT
  Age: 19 Year
  Sex: Male
  Weight: 123 kg

DRUGS (3)
  1. CABENUVA [Suspect]
     Active Substance: CABOTEGRAVIR\RILPIVIRINE
     Indication: HIV infection
     Dosage: UNK UNK, MO, INJECTION ONCE A MONTH FOR 2 MONTHS THEN EVERY OTHER 2 MONTH THRE AFTER
     Route: 030
     Dates: start: 20230503
  2. CABENUVA [Suspect]
     Active Substance: CABOTEGRAVIR\RILPIVIRINE
     Dosage: UNK UNK, Q2M, INJECTION ONCE A MONTH FOR 2 MONTHS THEN EVERY OTHER 2 MONTH THRE AFTER
     Route: 030
     Dates: end: 20231215
  3. CABENUVA [Suspect]
     Active Substance: CABOTEGRAVIR\RILPIVIRINE

REACTIONS (6)
  - Blood HIV RNA increased [Recovering/Resolving]
  - Pathogen resistance [Not Recovered/Not Resolved]
  - Virologic failure [Unknown]
  - Viral mutation identified [Unknown]
  - Treatment failure [Unknown]
  - Wrong technique in product usage process [Unknown]

NARRATIVE: CASE EVENT DATE: 20230531
